FAERS Safety Report 22367138 (Version 1)
Quarter: 2023Q2

REPORT INFORMATION
  Report Type: Spontaneous
  Country: US (occurrence: US)
  Receive Date: 20230525
  Receipt Date: 20230525
  Transmission Date: 20230722
  Serious: Yes (Other)
  Sender: FDA-Public Use
  Company Number: US-GSKCCFUS-Case-01708427_AE-96387

PATIENT

DRUGS (3)
  1. JEMPERLI [Suspect]
     Active Substance: DOSTARLIMAB-GXLY
     Indication: Endometrial cancer
     Dosage: 500 MG (EVERY 3 WEEKS, DOSE1 THROUGH DOSE 4)
     Route: 042
     Dates: start: 202301
  2. JEMPERLI [Suspect]
     Active Substance: DOSTARLIMAB-GXLY
     Dosage: 1000 MG (EVERY 6 WEEKS STARTING WITH DOSE 5 ONWARDS)
  3. JEMPERLI [Suspect]
     Active Substance: DOSTARLIMAB-GXLY
     Dosage: 1000 MG (EVERY 6 WEEKS STARTING WITH DOSE 5 ONWARDS)

REACTIONS (2)
  - Immune-mediated hepatitis [Recovered/Resolved]
  - Malignant neoplasm progression [Unknown]
